FAERS Safety Report 6511838-9 (Version None)
Quarter: 2009Q4

REPORT INFORMATION
  Report Type: 
  Country: None (occurrence: None)
  Receive Date: 20091222
  Receipt Date: 20091221
  Transmission Date: 20100525
  Serious: Yes (Death, Life-Threatening, Hospitalization, Disabling, Other)
  Sender: FDA-Public Use
  Company Number: PHHO2007DE13415

PATIENT
  Sex: Male

DRUGS (8)
  1. STI571/CGP57148B T35717+CAPS [Suspect]
     Indication: PROSTATE CANCER
     Dosage: 800 MG, QD
     Route: 048
     Dates: start: 20070405
  2. ACTOS [Concomitant]
  3. ARCOXIA [Concomitant]
  4. OVASTAT [Concomitant]
  5. FORTECORTIN [Concomitant]
  6. AMOXICILLIN AND CLAVULANATE POTASSIUM [Concomitant]
  7. POTASSIUM [Concomitant]
  8. ESOMEPRAZOLE [Concomitant]

REACTIONS (32)
  - ALCOHOL ABUSE [None]
  - BLADDER OBSTRUCTION [None]
  - BLADDER TAMPONADE [None]
  - BLOOD CREATINE INCREASED [None]
  - BRONCHOSPASM [None]
  - CARDIAC DISORDER [None]
  - CARDIO-RESPIRATORY ARREST [None]
  - DEATH [None]
  - DEEP VEIN THROMBOSIS [None]
  - DEHYDRATION [None]
  - DRUG INEFFECTIVE [None]
  - DYSPEPSIA [None]
  - ELECTROLYTE IMBALANCE [None]
  - ENDOTRACHEAL INTUBATION [None]
  - GASTRIC HAEMORRHAGE [None]
  - HAEMATEMESIS [None]
  - HAEMATURIA [None]
  - HAEMOGLOBIN DECREASED [None]
  - HYDRONEPHROSIS [None]
  - HYPERTENSION [None]
  - HYPOKALAEMIA [None]
  - HYPOTENSION [None]
  - ILEUS [None]
  - MALIGNANT NEOPLASM PROGRESSION [None]
  - MENTAL DISORDER [None]
  - PENILE OEDEMA [None]
  - POSTRENAL FAILURE [None]
  - PROSTATIC OPERATION [None]
  - RENAL SURGERY [None]
  - SCROTAL OEDEMA [None]
  - SEPSIS [None]
  - URINARY BLADDER HAEMORRHAGE [None]
